FAERS Safety Report 4961464-8 (Version None)
Quarter: 2006Q1

REPORT INFORMATION
  Report Type: 
  Country: None (occurrence: None)
  Receive Date: 20060201
  Receipt Date: 20051022
  Transmission Date: 20060701
  Serious: No
  Sender: FDA-Public Use
  Company Number: 2005PV003823

PATIENT
  Age: 74 Year
  Sex: Female
  Weight: 64.4108 kg

DRUGS (6)
  1. BYETTA [Suspect]
     Indication: DIABETES MELLITUS NON-INSULIN-DEPENDENT
     Dosage: 5 MCG;BID;SC
     Route: 058
     Dates: start: 20051011
  2. COUMADIN [Suspect]
     Indication: DRUG USE FOR UNKNOWN INDICATION
     Dosage: 5 MG;QPM
     Dates: start: 20051012, end: 20051020
  3. AVANDIA [Concomitant]
  4. AMARYL [Concomitant]
  5. LIPITOR [Concomitant]
  6. METOPROLOL [Concomitant]

REACTIONS (5)
  - DECREASED APPETITE [None]
  - NAUSEA [None]
  - PROTHROMBIN TIME SHORTENED [None]
  - VOMITING [None]
  - WEIGHT DECREASED [None]
